FAERS Safety Report 7208271-3 (Version None)
Quarter: 2011Q1

REPORT INFORMATION
  Report Type: 
  Country: None (occurrence: None)
  Receive Date: 20110104
  Receipt Date: 20101214
  Transmission Date: 20110831
  Serious: No
  Sender: FDA-Public Use
  Company Number: ES-JNJFOC-20101101179

PATIENT
  Age: 44 Year
  Sex: Male

DRUGS (6)
  1. METHOTREXATE [Concomitant]
  2. USTEKIMUMAB [Suspect]
     Indication: PSORIASIS
     Route: 058
  3. CYCLOSPORINE [Concomitant]
  4. ETANERCEPT [Concomitant]
  5. ADALIMUMAB [Concomitant]
  6. USTEKIMUMAB [Suspect]
     Route: 058

REACTIONS (1)
  - PSORIASIS [None]
